FAERS Safety Report 8889405 (Version 1)
Quarter: 2012Q4

REPORT INFORMATION
  Report Type: Spontaneous
  Country: US (occurrence: None)
  Receive Date: 20121002
  Receipt Date: 20121002
  Transmission Date: 20130627
  Serious: Yes (Hospitalization)
  Sender: FDA-Public Use
  Company Number: RB-32567-2011

PATIENT
  Sex: Female

DRUGS (5)
  1. SUBOXONE [Suspect]
     Indication: DRUG DEPENDENCE
     Route: 060
     Dates: start: 201008, end: 20110918
  2. SUBOXONE [Suspect]
     Indication: DRUG DEPENDENCE
     Dosage: various tapered doses
     Route: 060
     Dates: start: 20110918, end: 201110
  3. SUBUTEX [Suspect]
     Indication: DRUG DEPENDENCE
     Route: 060
     Dates: start: 201110, end: 201204
  4. SUBUTEX [Suspect]
     Indication: DRUG DEPENDENCE
     Dosage: varied tapered doses
     Route: 060
     Dates: start: 201204, end: 20120510
  5. PRENATAL VITAMINS [Concomitant]

REACTIONS (16)
  - Substance abuse [None]
  - Maternal exposure during pregnancy [None]
  - Underdose [None]
  - Wrong technique in drug usage process [None]
  - Insomnia [None]
  - Pain in extremity [None]
  - Drug withdrawal syndrome [None]
  - Body temperature [None]
  - Nausea [None]
  - Vomiting [None]
  - Tremor [None]
  - Dizziness [None]
  - Lacrimation increased [None]
  - Depression [None]
  - Ear infection [None]
  - Prolonged labour [None]
